FAERS Safety Report 4577788-2 (Version None)
Quarter: 2005Q1

REPORT INFORMATION
  Report Type: 
  Country: None (occurrence: None)
  Receive Date: 20050209
  Receipt Date: 20050127
  Transmission Date: 20050727
  Serious: Yes (Hospitalization)
  Sender: FDA-Public Use
  Company Number: 206205

PATIENT
  Age: 41 Year
  Sex: Female

DRUGS (1)
  1. AVONEX [Suspect]
     Indication: MULTIPLE SCLEROSIS
     Dosage: 30 UG; QW; IM
     Route: 030
     Dates: start: 20040429

REACTIONS (6)
  - AGEUSIA [None]
  - CONDITION AGGRAVATED [None]
  - DEHYDRATION [None]
  - EYE MOVEMENT DISORDER [None]
  - MULTIPLE SCLEROSIS [None]
  - MUSCLE TWITCHING [None]
